FAERS Safety Report 14074390 (Version 1)
Quarter: 2017Q4

REPORT INFORMATION
  Report Type: Spontaneous
  Country: US (occurrence: US)
  Receive Date: 20171011
  Receipt Date: 20171011
  Transmission Date: 20180321
  Serious: Yes (Hospitalization, Other)
  Sender: FDA-Public Use
  Company Number: US-GLAXOSMITHKLINE-US2017GSK154985

PATIENT
  Age: 73 Year
  Sex: Female

DRUGS (13)
  1. LORAZEPAM. [Concomitant]
     Active Substance: LORAZEPAM
  2. CARVEDILOL. [Concomitant]
     Active Substance: CARVEDILOL
  3. ADVAIR DISKUS [Suspect]
     Active Substance: FLUTICASONE PROPIONATE\SALMETEROL XINAFOATE
     Indication: CHRONIC OBSTRUCTIVE PULMONARY DISEASE
     Dosage: 1 PUFF(S), QD
     Route: 055
     Dates: start: 2007
  4. DUONEB [Concomitant]
     Active Substance: ALBUTEROL SULFATE\IPRATROPIUM BROMIDE
  5. NORVASC [Concomitant]
     Active Substance: AMLODIPINE BESYLATE
  6. FLONASE [Concomitant]
     Active Substance: FLUTICASONE PROPIONATE
  7. FUROSEMIDE. [Concomitant]
     Active Substance: FUROSEMIDE
  8. LIPITOR [Concomitant]
     Active Substance: ATORVASTATIN CALCIUM
  9. NYSTATIN. [Concomitant]
     Active Substance: NYSTATIN
  10. SOLU-MEDROL [Concomitant]
     Active Substance: METHYLPREDNISOLONE SODIUM SUCCINATE
  11. CLONIDINE. [Concomitant]
     Active Substance: CLONIDINE
  12. ZOFRAN [Concomitant]
     Active Substance: ONDANSETRON HYDROCHLORIDE
  13. OXYCODONE [Concomitant]
     Active Substance: OXYCODONE

REACTIONS (10)
  - Tongue neoplasm malignant stage unspecified [Unknown]
  - Throat cancer [Unknown]
  - Aspiration [Unknown]
  - Pharyngeal operation [Unknown]
  - Wrong technique in product usage process [Unknown]
  - Renal failure [Unknown]
  - Eating disorder [Unknown]
  - Oral candidiasis [Unknown]
  - Pneumonia aspiration [Unknown]
  - Tongue operation [Unknown]

NARRATIVE: CASE EVENT DATE: 201411
